FAERS Safety Report 21310016 (Version 1)
Quarter: 2022Q3

REPORT INFORMATION
  Report Type: Spontaneous
  Country: US (occurrence: US)
  Receive Date: 20220909
  Receipt Date: 20220909
  Transmission Date: 20221027
  Serious: Yes (Hospitalization, Other)
  Sender: FDA-Public Use
  Company Number: US-MLMSERVICE-20220824-3751239-1

PATIENT
  Age: 84 Year
  Sex: Male

DRUGS (1)
  1. PREDNISONE [Suspect]
     Active Substance: PREDNISONE
     Indication: Arthralgia
     Dosage: 10 MILLIGRAM, ONCE A DAY LOW DOSE()
     Route: 065

REACTIONS (3)
  - Community acquired infection [Recovered/Resolved]
  - Achromobacter infection [Recovered/Resolved]
  - Abscess bacterial [Recovered/Resolved]
